FAERS Safety Report 20156931 (Version 1)
Quarter: 2021Q4

REPORT INFORMATION
  Report Type: Spontaneous
  Country: US (occurrence: None)
  Receive Date: 20211207
  Receipt Date: 20211207
  Transmission Date: 20220303
  Serious: No
  Sender: FDA-Public Use
  Company Number: None

PATIENT
  Age: 65 Year
  Sex: Male

DRUGS (1)
  1. CANNABIDIOL [Suspect]
     Active Substance: CANNABIDIOL
     Dosage: FREQUENCY : ONCE;?

REACTIONS (4)
  - Diarrhoea [None]
  - Loss of consciousness [None]
  - Fall [None]
  - Malaise [None]

NARRATIVE: CASE EVENT DATE: 20211130
